FAERS Safety Report 18887909 (Version 2)
Quarter: 2021Q1

REPORT INFORMATION
  Report Type: Report from Study
  Country: None (occurrence: US)
  Receive Date: 20210212
  Receipt Date: 20210216
  Transmission Date: 20210420
  Serious: Yes (Other)
  Sender: FDA-Public Use
  Company Number: US-ABBVIE-21K-163-3772010-00

PATIENT
  Sex: Female

DRUGS (1)
  1. ORILISSA [Suspect]
     Active Substance: ELAGOLIX SODIUM
     Indication: ENDOMETRIOSIS
     Route: 048
     Dates: start: 20210119, end: 202101

REACTIONS (5)
  - Tunnel vision [Unknown]
  - Arthralgia [Unknown]
  - Fatigue [Unknown]
  - Migraine [Unknown]
  - Back pain [Unknown]

NARRATIVE: CASE EVENT DATE: 20210126
